FAERS Safety Report 23238785 (Version 1)
Quarter: 2023Q4

REPORT INFORMATION
  Report Type: Spontaneous
  Country: US (occurrence: US)
  Receive Date: 20231129
  Receipt Date: 20231129
  Transmission Date: 20240109
  Serious: Yes (Death, Hospitalization, Other)
  Sender: FDA-Public Use
  Company Number: US-ADVANZ PHARMA-202311010753

PATIENT

DRUGS (4)
  1. DIGOXIN [Suspect]
     Active Substance: DIGOXIN
     Dosage: UNK
  2. LASIX [Suspect]
     Active Substance: FUROSEMIDE
     Dosage: UNK
  3. ISOSORBIDE MONONITRATE [Suspect]
     Active Substance: ISOSORBIDE MONONITRATE
     Dosage: UNK
  4. ATENOLOL [Suspect]
     Active Substance: ATENOLOL
     Dosage: UNK

REACTIONS (5)
  - Decompensated hypothyroidism [Fatal]
  - Bradycardia [Fatal]
  - Hypoglycaemia [Recovered/Resolved]
  - Toxicity to various agents [Unknown]
  - Pyuria [Unknown]
